FAERS Safety Report 9820881 (Version 1)
Quarter: 2014Q1

REPORT INFORMATION
  Report Type: Spontaneous
  Country: US (occurrence: None)
  Receive Date: 20140114
  Receipt Date: 20140114
  Transmission Date: 20141002
  Serious: No
  Sender: FDA-Public Use
  Company Number: None

PATIENT
  Age: 65 Year
  Sex: Male
  Weight: 74.84 kg

DRUGS (1)
  1. XARELTO, 20 MG, JANSSEN PHARM [Suspect]
     Indication: ATRIAL FIBRILLATION
     Dosage: TAKEN BY MOUTH
     Dates: start: 20140110, end: 20140113

REACTIONS (1)
  - Blood urine present [None]
